FAERS Safety Report 6024660-7 (Version None)
Quarter: 2008Q4

REPORT INFORMATION
  Report Type: 
  Country: None (occurrence: None)
  Receive Date: 20081231
  Receipt Date: 20081226
  Transmission Date: 20090506
  Serious: Yes (Hospitalization)
  Sender: FDA-Public Use
  Company Number: JP-BRISTOL-MYERS SQUIBB COMPANY-14438915

PATIENT
  Age: 55 Year
  Sex: Female
  Weight: 51 kg

DRUGS (14)
  1. ABILIFY [Suspect]
     Indication: SCHIZOPHRENIA
     Dosage: 26AUG08-08SEP08(6MG/DAY);10SEP08-06OCT08(12MG);07OCT08-(18MG/DAY)
     Route: 048
     Dates: start: 20080826
  2. SEROQUEL [Concomitant]
     Route: 048
  3. OMEPRAL [Concomitant]
     Dates: start: 20050201
  4. PREDNISOLONE [Concomitant]
  5. MAGLAX [Concomitant]
     Dosage: TABS
     Dates: start: 20070731
  6. CLARITHROMYCIN [Concomitant]
     Dosage: TABS
  7. LAMISIL [Concomitant]
     Dosage: TABS
  8. HALOPERIDOL [Concomitant]
  9. RISPERDAL [Concomitant]
     Dosage: TABS
  10. CHLORPROMAZINE HCL [Concomitant]
     Dates: start: 20071218
  11. HOKUNALIN [Concomitant]
     Dosage: TAPE
  12. AKINETON [Concomitant]
     Dosage: TABS
  13. LODOPIN [Concomitant]
     Dosage: TABS
  14. HIRNAMIN [Concomitant]
     Dates: start: 20061226

REACTIONS (1)
  - RED BLOOD CELL COUNT DECREASED [None]
